FAERS Safety Report 13952282 (Version 2)
Quarter: 2018Q3

REPORT INFORMATION
  Report Type: Spontaneous
  Country: US (occurrence: US)
  Receive Date: 20170911
  Receipt Date: 20180917
  Transmission Date: 20181010
  Serious: No
  Sender: FDA-Public Use
  Company Number: US-TEVA-2015-27250

PATIENT
  Sex: Female

DRUGS (14)
  1. DURAGESIC [Concomitant]
     Active Substance: FENTANYL
     Dosage: 25MCG/HR
     Dates: start: 20160112
  2. EMEND [Concomitant]
     Active Substance: APREPITANT
     Dosage: .1429 DOSAGE FORMS DAILY; 125MG (1)?80M(2) CAPSULES IN A DOSE PACK
     Dates: start: 20160105
  3. FENTANYL. [Suspect]
     Active Substance: FENTANYL
     Indication: CANCER PAIN
     Route: 062
     Dates: start: 201512
  4. LEUKINE [Concomitant]
     Active Substance: SARGRAMOSTIM
     Dates: start: 20160819, end: 20160826
  5. LISINOPRIL. [Concomitant]
     Active Substance: LISINOPRIL
  6. ZITHROMAX [Concomitant]
     Active Substance: AZITHROMYCIN DIHYDRATE
  7. ALBUTEROL SULFATE. [Concomitant]
     Active Substance: ALBUTEROL SULFATE
     Dosage: 2.5M/3ML
     Dates: start: 20160607
  8. FOLIC ACID. [Concomitant]
     Active Substance: FOLIC ACID
     Dates: start: 20151119
  9. ZOFRAN [Concomitant]
     Active Substance: ONDANSETRON HYDROCHLORIDE
  10. DURAGESIC [Concomitant]
     Active Substance: FENTANYL
     Dosage: 25MCG/HR
     Dates: start: 20160804
  11. FOLIC ACID. [Concomitant]
     Active Substance: FOLIC ACID
     Route: 048
     Dates: start: 20160223
  12. LEUKINE [Concomitant]
     Active Substance: SARGRAMOSTIM
     Dates: start: 20160729, end: 20160729
  13. AMBIEN [Concomitant]
     Active Substance: ZOLPIDEM TARTRATE
     Dosage: 5 MILLIGRAM DAILY; AT BEDTIME.
     Route: 048
     Dates: start: 20160819
  14. LACTULOSE. [Concomitant]
     Active Substance: LACTULOSE

REACTIONS (2)
  - Dizziness [Not Recovered/Not Resolved]
  - Constipation [Not Recovered/Not Resolved]
